FAERS Safety Report 6393179-6 (Version None)
Quarter: 2009Q4

REPORT INFORMATION
  Report Type: 
  Country: None (occurrence: None)
  Receive Date: 20091008
  Receipt Date: 20090928
  Transmission Date: 20100525
  Serious: Yes (Death, Other)
  Sender: FDA-Public Use
  Company Number: GB-BAXTER-2009BH013855

PATIENT
  Age: 61 Year
  Sex: Female

DRUGS (9)
  1. HEPARIN SODIUM 1,000 UNITS AND SODIUM CHLORIDE 0.9% [Suspect]
     Indication: ANGIOPLASTY
     Route: 065
     Dates: start: 20090410, end: 20090410
  2. ANGIOMAX [Suspect]
     Indication: ANGINA PECTORIS
     Route: 040
     Dates: start: 20090410, end: 20090410
  3. CLOPIDOGREL [Suspect]
     Indication: ANGIOPLASTY
     Route: 048
     Dates: start: 20090409, end: 20090409
  4. CLOPIDOGREL [Suspect]
     Indication: ANGINA PECTORIS
     Route: 048
     Dates: start: 20090409, end: 20090409
  5. CLOPIDOGREL [Suspect]
     Route: 048
     Dates: start: 20090410, end: 20090410
  6. CLOPIDOGREL [Suspect]
     Route: 048
     Dates: start: 20090410, end: 20090410
  7. ASPIRIN [Suspect]
     Indication: ANGINA PECTORIS
     Route: 065
     Dates: start: 20090410
  8. REOPRO [Suspect]
     Indication: ANGINA PECTORIS
     Route: 065
     Dates: start: 20090410
  9. BETA BLOCKING AGENTS [Concomitant]
     Indication: DRUG USE FOR UNKNOWN INDICATION
     Route: 065

REACTIONS (6)
  - CORONARY ARTERY THROMBOSIS [None]
  - DRUG INEFFECTIVE [None]
  - DRUG INTERACTION [None]
  - OVERDOSE [None]
  - PUNCTURE SITE HAEMORRHAGE [None]
  - SUBDURAL HAEMORRHAGE [None]
